FAERS Safety Report 14898703 (Version 1)
Quarter: 2018Q2

REPORT INFORMATION
  Report Type: Report from Study
  Country: US (occurrence: US)
  Receive Date: 20180515
  Receipt Date: 20180515
  Transmission Date: 20180711
  Serious: Yes (Hospitalization)
  Sender: FDA-Public Use
  Company Number: US-ACTELION-A-US2018-166555

PATIENT
  Age: 2 Year
  Sex: Male

DRUGS (3)
  1. TRACLEER [Suspect]
     Active Substance: BOSENTAN
     Indication: PULMONARY ARTERIAL HYPERTENSION
     Dosage: 15.625 MG, BID
     Route: 048
     Dates: start: 20170502
  2. TRACLEER [Suspect]
     Active Substance: BOSENTAN
     Dosage: 31.25 MG, Q12HRS
     Route: 048
  3. TRACLEER [Suspect]
     Active Substance: BOSENTAN
     Dosage: 32 MG, BID
     Route: 048
     Dates: start: 20180119

REACTIONS (3)
  - Feeding disorder [Unknown]
  - Rhinovirus infection [Recovered/Resolved]
  - Oral disorder [Unknown]
